FAERS Safety Report 9621030 (Version 4)
Quarter: 2014Q2

REPORT INFORMATION
  Report Type: Report from Study
  Country: IN (occurrence: IN)
  Receive Date: 20131015
  Receipt Date: 20140506
  Transmission Date: 20141212
  Serious: Yes (Death, Hospitalization)
  Sender: FDA-Public Use
  Company Number: PHHY2013IN101431

PATIENT
  Age: 59 Year
  Sex: Male

DRUGS (9)
  1. AFINITOR [Suspect]
     Indication: METASTATIC RENAL CELL CARCINOMA
     Dosage: 5 MG, QD
     Route: 048
     Dates: start: 20130624
  2. AFINITOR [Suspect]
     Dosage: 10 MG, QD
     Route: 048
  3. AFINITOR [Suspect]
     Dosage: 5 MG, QD
     Route: 048
     Dates: start: 20130929, end: 20131201
  4. FLUCONAZOLE [Concomitant]
     Dosage: 50 MG, QD
  5. ACITROM [Concomitant]
     Indication: TUMOUR THROMBOSIS
  6. URIMAX [Concomitant]
  7. HEPAMERZ [Concomitant]
  8. SHELCAL [Concomitant]
  9. STOOL SOFTENER [Concomitant]

REACTIONS (11)
  - Death [Fatal]
  - Prothrombin time prolonged [Recovering/Resolving]
  - International normalised ratio increased [Recovering/Resolving]
  - Back pain [Unknown]
  - Myalgia [Unknown]
  - Pain in extremity [Unknown]
  - Oral candidiasis [Unknown]
  - Mouth ulceration [Unknown]
  - Constipation [Unknown]
  - Asthenia [Not Recovered/Not Resolved]
  - Pancytopenia [Not Recovered/Not Resolved]
